FAERS Safety Report 6759209-4 (Version None)
Quarter: 2010Q2

REPORT INFORMATION
  Report Type: 
  Country: None (occurrence: None)
  Receive Date: 20100607
  Receipt Date: 20100526
  Transmission Date: 20101027
  Serious: Yes (Other)
  Sender: FDA-Public Use
  Company Number: JP-PFIZER INC-2010068292

PATIENT
  Age: 79 Year
  Sex: Female

DRUGS (1)
  1. ZITHROMAC SR [Suspect]
     Indication: INFECTION PROPHYLAXIS
     Dosage: 2 G, 1X/DAY
     Route: 048

REACTIONS (1)
  - URINARY TRACT INFECTION [None]
